FAERS Safety Report 6738978-3 (Version None)
Quarter: 2010Q2

REPORT INFORMATION
  Report Type: 
  Country: None (occurrence: None)
  Receive Date: 20100524
  Receipt Date: 20100524
  Transmission Date: 20101027
  Serious: Yes (Life-Threatening)
  Sender: FDA-Public Use
  Company Number: None

PATIENT
  Age: 8 Month
  Sex: Male
  Weight: 10.342 kg

DRUGS (2)
  1. HYLAND'S TEETHING [Suspect]
     Indication: TEETHING
     Dosage: GAVE 2 AT 8:30 DAUGHTER GAVE * 2 AT 8:30 AM. PO
     Route: 048
     Dates: start: 20100519, end: 20100519
  2. CONCENTRATED MOTRIN INFANTS DROPS [Suspect]
     Indication: TEETHING
     Dosage: 1.875 ONE DOES 8:30 AM PO
     Route: 048
     Dates: start: 20100519, end: 20100519

REACTIONS (6)
  - EYE ROLLING [None]
  - GAIT DISTURBANCE [None]
  - HYPOTONIA [None]
  - HYPOVENTILATION [None]
  - RESPIRATORY ARREST [None]
  - UNRESPONSIVE TO STIMULI [None]
